FAERS Safety Report 23450889 (Version 1)
Quarter: 2024Q1

REPORT INFORMATION
  Report Type: Spontaneous
  Country: IT (occurrence: IT)
  Receive Date: 20240129
  Receipt Date: 20240129
  Transmission Date: 20240410
  Serious: Yes (Hospitalization, Other)
  Sender: FDA-Public Use
  Company Number: None

PATIENT
  Age: 74 Year
  Sex: Male
  Weight: 70 kg

DRUGS (3)
  1. ELIQUIS [Suspect]
     Active Substance: APIXABAN
     Indication: Atrial fibrillation
     Route: 048
     Dates: start: 20190917, end: 20231205
  2. ELIQUIS [Suspect]
     Active Substance: APIXABAN
     Dates: start: 202312, end: 20240108
  3. ENOXAPARIN SODIUM [Concomitant]
     Active Substance: ENOXAPARIN SODIUM
     Indication: Atrial fibrillation
     Dosage: INHIXA 6000 IU X 2 S.C./DAY
     Route: 058
     Dates: start: 20231205, end: 20231218

REACTIONS (5)
  - Hyperpyrexia [Recovered/Resolved]
  - Pain [Unknown]
  - Haemorrhage [Unknown]
  - Pain in extremity [Unknown]
  - Haematoma muscle [Not Recovered/Not Resolved]

NARRATIVE: CASE EVENT DATE: 20231101
